FAERS Safety Report 8287086-1 (Version None)
Quarter: 2012Q2

REPORT INFORMATION
  Report Type: 
  Country: None (occurrence: None)
  Receive Date: 20120416
  Receipt Date: 20120126
  Transmission Date: 20120825
  Serious: No
  Sender: FDA-Public Use
  Company Number: US-ALLERGAN-1201226US

PATIENT
  Sex: Female

DRUGS (1)
  1. ZYMAXID [Suspect]
     Indication: CORNEAL DISORDER
     Dosage: 2 GTT, SINGLE
     Route: 047
     Dates: start: 20120122, end: 20120122

REACTIONS (4)
  - URTICARIA [None]
  - CORNEAL ABRASION [None]
  - SCLERAL HYPERAEMIA [None]
  - EYE IRRITATION [None]
